FAERS Safety Report 19269308 (Version 1)
Quarter: 2021Q2

REPORT INFORMATION
  Report Type: Spontaneous
  Country: US (occurrence: US)
  Receive Date: 20210517
  Receipt Date: 20210517
  Transmission Date: 20210717
  Serious: No
  Sender: FDA-Public Use
  Company Number: US-BAUSCH-BL-2021-012816

PATIENT
  Age: 67 Year
  Sex: Female

DRUGS (5)
  1. REFRESH [Concomitant]
     Active Substance: UNSPECIFIED INGREDIENT
     Indication: PRODUCT USED FOR UNKNOWN INDICATION
  2. MURO 128 [Suspect]
     Active Substance: SODIUM CHLORIDE
     Indication: OCULAR HYPERAEMIA
  3. MURO 128 [Suspect]
     Active Substance: SODIUM CHLORIDE
     Indication: LACRIMATION DECREASED
  4. TOBRAMYCIN AND DEXAMETHASONE [Suspect]
     Active Substance: DEXAMETHASONE\TOBRAMYCIN
     Indication: POSTOPERATIVE CARE
     Dosage: 1 DROP IN THE RIGHT EYE ONCE DAILY
     Route: 047
     Dates: start: 20210402, end: 202104
  5. MURO 128 [Suspect]
     Active Substance: SODIUM CHLORIDE
     Indication: CORNEAL OEDEMA
     Route: 047
     Dates: start: 20210407

REACTIONS (4)
  - Vision blurred [Recovering/Resolving]
  - Eye pain [Recovering/Resolving]
  - Swelling of eyelid [Recovering/Resolving]
  - Ocular hyperaemia [Recovering/Resolving]

NARRATIVE: CASE EVENT DATE: 202104
